FAERS Safety Report 25523549 (Version 3)
Quarter: 2025Q3

REPORT INFORMATION
  Report Type: Report from Study
  Country: US (occurrence: US)
  Receive Date: 20250707
  Receipt Date: 20250915
  Transmission Date: 20251021
  Serious: Yes (Hospitalization, Other)
  Sender: ABBVIE
  Company Number: US-ABBVIE-6354774

PATIENT
  Age: 42 Year
  Sex: Female

DRUGS (3)
  1. SKYRIZI [Suspect]
     Active Substance: RISANKIZUMAB-RZAA
     Indication: Colitis ulcerative
     Dosage: DRUG END DATE- 2025
     Route: 058
     Dates: start: 20250425
  2. ELIQUIS [Concomitant]
     Active Substance: APIXABAN
     Indication: Thrombosis
  3. SKYRIZI [Suspect]
     Active Substance: RISANKIZUMAB-RZAA
     Indication: Colitis ulcerative
     Route: 042
     Dates: start: 2025, end: 2025

REACTIONS (8)
  - Clostridium difficile infection [Recovering/Resolving]
  - Heart rate increased [Unknown]
  - Thrombosis [Unknown]
  - Central venous catheterisation [Recovering/Resolving]
  - Oedema peripheral [Unknown]
  - Anaemia [Recovering/Resolving]
  - Ulcer [Not Recovered/Not Resolved]
  - Drug ineffective [Unknown]

NARRATIVE: CASE EVENT DATE: 20250101
